FAERS Safety Report 12217968 (Version 5)
Quarter: 2016Q2

REPORT INFORMATION
  Report Type: Report from Study
  Country: US (occurrence: US)
  Receive Date: 20160329
  Receipt Date: 20160628
  Transmission Date: 20160815
  Serious: Yes (Death, Hospitalization)
  Sender: FDA-Public Use
  Company Number: US-ACTELION-A-NJ2015-128341

PATIENT
  Age: 77 Year
  Sex: Female

DRUGS (4)
  1. REMODULIN [Concomitant]
     Active Substance: TREPROSTINIL
     Route: 051
  2. SILDENAFIL. [Concomitant]
     Active Substance: SILDENAFIL
  3. TRACLEER [Suspect]
     Active Substance: BOSENTAN
     Indication: PULMONARY ARTERIAL HYPERTENSION
     Dosage: 125 MG, BID
     Route: 048
     Dates: end: 20160522
  4. TYVASO [Concomitant]
     Active Substance: TREPROSTINIL

REACTIONS (20)
  - Sepsis [Unknown]
  - Drug administration error [Unknown]
  - Nausea [Unknown]
  - Dizziness [Unknown]
  - Hypotension [Unknown]
  - Oxygen saturation decreased [Unknown]
  - Abdominal pain [Unknown]
  - Erythema [Unknown]
  - Vomiting [Unknown]
  - Peripheral swelling [Unknown]
  - Hypoxia [Unknown]
  - Dyspnoea [Not Recovered/Not Resolved]
  - Device leakage [Unknown]
  - Infusion related reaction [Unknown]
  - Catheter site erythema [Unknown]
  - Headache [Unknown]
  - Hernia repair [Fatal]
  - Anxiety [Unknown]
  - Swelling face [Unknown]
  - Asthenia [Unknown]

NARRATIVE: CASE EVENT DATE: 20160225
